FAERS Safety Report 8029519-1 (Version None)
Quarter: 2012Q1

REPORT INFORMATION
  Report Type: 
  Country: None (occurrence: None)
  Receive Date: 20120109
  Receipt Date: 20111228
  Transmission Date: 20120608
  Serious: No
  Sender: FDA-Public Use
  Company Number: US-BIOGENIDEC-2011BI048939

PATIENT
  Sex: Female

DRUGS (1)
  1. AVONEX [Suspect]
     Indication: MULTIPLE SCLEROSIS
     Route: 030
     Dates: start: 19960610, end: 19980610

REACTIONS (6)
  - FALL [None]
  - ANXIETY [None]
  - DIZZINESS [None]
  - ADVERSE EVENT [None]
  - NAUSEA [None]
  - FEAR OF NEEDLES [None]
